FAERS Safety Report 9117115 (Version 1)
Quarter: 2013Q1

REPORT INFORMATION
  Report Type: Spontaneous
  Country: BR (occurrence: BR)
  Receive Date: 20130225
  Receipt Date: 20130225
  Transmission Date: 20140127
  Serious: Yes (Other)
  Sender: FDA-Public Use
  Company Number: BR-BAYER-2013-020938

PATIENT
  Age: 25 Year
  Sex: Female
  Weight: 69.84 kg

DRUGS (2)
  1. YASMIN [Suspect]
     Indication: CONTRACEPTION
     Dosage: UNK
     Route: 048
     Dates: start: 2008
  2. CIPRO XR [Concomitant]
     Indication: URINARY TRACT INFECTION
     Dosage: 1 DF, QD
     Route: 048
     Dates: start: 20130214

REACTIONS (3)
  - Nephrolithiasis [None]
  - Inappropriate schedule of drug administration [None]
  - Metrorrhagia [Not Recovered/Not Resolved]
